FAERS Safety Report 5012152-3 (Version None)
Quarter: 2006Q2

REPORT INFORMATION
  Report Type: 
  Country: None (occurrence: None)
  Receive Date: 20060524
  Receipt Date: 20060510
  Transmission Date: 20061013
  Serious: Yes (Death)
  Sender: FDA-Public Use
  Company Number: 2006RR-02290

PATIENT
  Age: 51 Year
  Sex: Female

DRUGS (4)
  1. MIRTAZAPINE [Suspect]
  2. ZOPICLONE (ZOPICLONE) [Suspect]
  3. LORAZEPAM [Suspect]
  4. CHLORPROMAZINE [Suspect]

REACTIONS (1)
  - MULTIPLE DRUG OVERDOSE INTENTIONAL [None]
